FAERS Safety Report 5423646-0 (Version None)
Quarter: 2007Q3

REPORT INFORMATION
  Report Type: 
  Country: None (occurrence: None)
  Receive Date: 20070823
  Receipt Date: 20070821
  Transmission Date: 20080115
  Serious: Yes (Other)
  Sender: FDA-Public Use
  Company Number: A0654258A

PATIENT
  Age: 51 Year
  Sex: Female

DRUGS (4)
  1. LAMICTAL [Suspect]
     Route: 048
     Dates: start: 20030101
  2. PAXIL [Concomitant]
  3. PREVACID [Concomitant]
  4. CLONAZEPAM [Concomitant]

REACTIONS (40)
  - ABDOMINAL DISTENSION [None]
  - ACNE [None]
  - ANAPHYLACTIC REACTION [None]
  - ANXIETY [None]
  - ARTHROPATHY [None]
  - CHEST PAIN [None]
  - COLONIC POLYP [None]
  - DENTAL CARIES [None]
  - DIZZINESS [None]
  - EYE PAIN [None]
  - GENERAL PHYSICAL HEALTH DETERIORATION [None]
  - HERPES ZOSTER [None]
  - INFLUENZA LIKE ILLNESS [None]
  - INSOMNIA [None]
  - KIDNEY INFECTION [None]
  - LARYNGITIS [None]
  - LOSS OF CONSCIOUSNESS [None]
  - MEMORY IMPAIRMENT [None]
  - MIGRAINE [None]
  - MOUTH ULCERATION [None]
  - MUSCLE ATROPHY [None]
  - MUSCLE CONTRACTURE [None]
  - MUSCLE SPASMS [None]
  - NIGHT SWEATS [None]
  - PALPITATIONS [None]
  - PANIC ATTACK [None]
  - PEAU D'ORANGE [None]
  - PETIT MAL EPILEPSY [None]
  - RASH [None]
  - SKIN DISCOLOURATION [None]
  - SWOLLEN TONGUE [None]
  - TENDON DISORDER [None]
  - THINKING ABNORMAL [None]
  - TINNITUS [None]
  - TOOTH FRACTURE [None]
  - TOOTH LOSS [None]
  - URINARY RETENTION [None]
  - URINARY TRACT INFECTION [None]
  - VARICOSE VEIN [None]
  - VISION BLURRED [None]
